FAERS Safety Report 5471662-5 (Version None)
Quarter: 2007Q3

REPORT INFORMATION
  Report Type: 
  Country: None (occurrence: None)
  Receive Date: 20070928
  Receipt Date: 20070313
  Transmission Date: 20080115
  Serious: No
  Sender: FDA-Public Use
  Company Number: US-BRISTOL-MYERS SQUIBB COMPANY-13713565

PATIENT

DRUGS (1)
  1. DEFINITY [Suspect]
     Indication: ECHOCARDIOGRAM

REACTIONS (1)
  - FLUSHING [None]
